FAERS Safety Report 20948404 (Version 1)
Quarter: 2022Q2

REPORT INFORMATION
  Report Type: Spontaneous
  Country: US (occurrence: US)
  Receive Date: 20220611
  Receipt Date: 20220611
  Transmission Date: 20220721
  Serious: No
  Sender: FDA-Public Use
  Company Number: US-drreddys-SPO/USA/22/0150829

PATIENT
  Age: 28 Year

DRUGS (1)
  1. ACCUTANE [Suspect]
     Active Substance: ISOTRETINOIN
     Indication: Product used for unknown indication
     Dosage: RMA ISSUE DATE: 03 MARCH 2022 06:39:03 PM, 31 MARCH 2022 02:26:26 PM, 28 APRIL 2022 03:40:09 PM

REACTIONS (1)
  - Treatment noncompliance [Unknown]
